FAERS Safety Report 19907834 (Version 2)
Quarter: 2021Q4

REPORT INFORMATION
  Report Type: Report from Study
  Country: US (occurrence: US)
  Receive Date: 20210930
  Receipt Date: 20211123
  Transmission Date: 20220304
  Serious: No
  Sender: FDA-Public Use
  Company Number: US-009507513-2109USA002953

PATIENT
  Age: 79 Year
  Sex: Female

DRUGS (1)
  1. JANUVIA [Suspect]
     Active Substance: SITAGLIPTIN PHOSPHATE
     Dosage: 25 MILLIGRAM, ONCE DAILY
     Route: 048

REACTIONS (3)
  - Glycosylated haemoglobin increased [Unknown]
  - Product dose omission issue [Unknown]
  - Inability to afford medication [Unknown]

NARRATIVE: CASE EVENT DATE: 20210909
